FAERS Safety Report 6852648-2 (Version None)
Quarter: 2010Q3

REPORT INFORMATION
  Report Type: 
  Country: None (occurrence: None)
  Receive Date: 20100717
  Receipt Date: 20080116
  Transmission Date: 20110219
  Serious: No
  Sender: FDA-Public Use
  Company Number: US-PFIZER INC-2007096830

PATIENT
  Sex: Female
  Weight: 52.272 kg

DRUGS (3)
  1. CHANTIX [Suspect]
     Indication: SMOKING CESSATION THERAPY
     Dates: start: 20071101, end: 20071101
  2. LISINOPRIL [Concomitant]
  3. OMEPRAZOLE [Concomitant]

REACTIONS (2)
  - PRODUCT QUALITY ISSUE [None]
  - VOMITING [None]
